FAERS Safety Report 6398840-5 (Version None)
Quarter: 2009Q4

REPORT INFORMATION
  Report Type: 
  Country: None (occurrence: None)
  Receive Date: 20091013
  Receipt Date: 20090929
  Transmission Date: 20100525
  Serious: Yes (Hospitalization)
  Sender: FDA-Public Use
  Company Number: US-MYLANLABS-2009S1017059

PATIENT
  Age: 70 Year
  Sex: Male

DRUGS (25)
  1. THALIDOMIDE [Suspect]
     Indication: MULTIPLE MYELOMA
     Dosage: DOSAGE NOT STATED
  2. DEXAMETHASONE 0.5MG TAB [Suspect]
     Indication: MULTIPLE MYELOMA
     Dosage: DOSAGE NOT STATED
  3. MELOXICAM [Suspect]
     Indication: MULTIPLE MYELOMA
     Dosage: DOSAGE NOT STATED
  4. CEFEPIME [Suspect]
     Dosage: DOSAGE NOT STATED
     Route: 042
  5. PAMIDRONIC ACID [Suspect]
     Indication: MULTIPLE MYELOMA
     Dosage: DOSAGE NOT STATED
  6. VANCOMYCIN [Suspect]
     Dosage: DOSAGE NOT STATED
     Route: 042
  7. FLUCONAZOLE [Suspect]
     Dosage: DOSAGE NOT STATED
     Route: 048
  8. MORPHINE [Suspect]
     Dosage: DOSGE NOT STATED
  9. ACETAMINOPHEN [Suspect]
     Dosage: DOSAGE NOT STATED
  10. HEPARIN [Suspect]
     Dosage: DOSAGE NOT STATED
  11. ENOXAPARIN SODIUM [Suspect]
     Dosage: DOSAGE NOT STATED
  12. HYDROCODONE [Concomitant]
     Indication: MULTIPLE MYELOMA
     Dosage: DOSAGE NOT STATED
  13. RANITIDINE [Concomitant]
     Indication: MULTIPLE MYELOMA
     Dosage: DOSAGE NOT STATED
  14. OMEPRAZOLE [Concomitant]
     Indication: MULTIPLE MYELOMA
     Dosage: DOSAGE NOT STATED
  15. PROMETHAZINE [Concomitant]
     Indication: MULTIPLE MYELOMA
     Dosage: DOSAGE NOT STATED
  16. LIDOCAINE [Concomitant]
     Indication: MULTIPLE MYELOMA
     Dosage: 5%
     Route: 061
  17. PEG 3350 AND ELECTROLYTES [Concomitant]
     Dosage: DOSAGE NOT STATED
  18. TESTOSTERONE ENANTHATE [Concomitant]
     Indication: MULTIPLE MYELOMA
     Dosage: DOSAGE NOT STATED
  19. NALOXONE [Concomitant]
     Dosage: DOSAGE NOT STATED
  20. PANTOPRAZOLE SODIUM [Concomitant]
     Dosage: DOSAGE NOT STATED
  21. DIPHENHYDRAMINE HCL [Concomitant]
     Dosage: DOSAGE NOT STATED
  22. ZOLPIDEM [Concomitant]
     Dosage: DOSAGE NOT STATED
  23. AMIODARONE [Concomitant]
     Dosage: DOSAGE NOT STATED
  24. ALPRAZOLAM [Concomitant]
     Dosage: DOSAGE NOT STATED
  25. NEUPOGEN [Concomitant]
     Dosage: DOSAGE NOT STATED

REACTIONS (1)
  - ACUTE GENERALISED EXANTHEMATOUS PUSTULOSIS [None]
